FAERS Safety Report 16034776 (Version 2)
Quarter: 2019Q1

REPORT INFORMATION
  Report Type: Spontaneous
  Country: BR (occurrence: BR)
  Receive Date: 20190305
  Receipt Date: 20190322
  Transmission Date: 20190418
  Serious: Yes (Other)
  Sender: FDA-Public Use
  Company Number: BR-ABBVIE-19P-020-2690105-00

PATIENT
  Sex: Female
  Weight: 63 kg

DRUGS (18)
  1. MIRTAZAPINE. [Concomitant]
     Active Substance: MIRTAZAPINE
     Indication: MANIA
  2. MONOCORDIL [Concomitant]
     Active Substance: ISOSORBIDE MONONITRATE
     Indication: HYPERTENSION
     Dosage: TABLETS ARE DILUTED; DAILY DOSE: 2 TABLET
     Route: 050
     Dates: start: 20181001
  3. PLAMET [Concomitant]
     Active Substance: BROMOPRIDE
     Indication: GASTROINTESTINAL DISORDER PROPHYLAXIS
     Route: 050
     Dates: start: 20181001
  4. NEXIUM [Concomitant]
     Active Substance: ESOMEPRAZOLE MAGNESIUM
     Indication: GASTROINTESTINAL DISORDER PROPHYLAXIS
     Route: 050
     Dates: start: 20181001
  5. DEPAKENE [Suspect]
     Active Substance: VALPROIC ACID
     Indication: SYNCOPE
     Dosage: SINCE 8 YEARS AGO; SWITCHED TO DEPAKENE SYRUP
     Route: 065
  6. APRESOLINA [Concomitant]
     Active Substance: HYDRALAZINE HYDROCHLORIDE
     Indication: HYPERTENSION
     Route: 050
     Dates: start: 20181001
  7. ATENSINA [Concomitant]
     Active Substance: CLONIDINE
     Indication: HYPERTENSION
     Dosage: ADMINISTERED ONLY WHEN BLOOD PRESSURE DOES NOT DECREASE; FORM STRENGTH: 0.150MG
     Route: 050
     Dates: start: 20181001
  8. OPTIVE [Concomitant]
     Active Substance: CARBOXYMETHYLCELLULOSE SODIUM\GLYCERIN
     Indication: EYE LUBRICATION THERAPY
     Dosage: DOSE IS 1 DROP PER EYE; DAILY DOSE: 1 DROP.
     Route: 047
  9. QUETIAPINE. [Concomitant]
     Active Substance: QUETIAPINE
     Indication: DEPRESSION
     Dosage: ADMINISTERED BEFORE SLEEP; DAILY DOSE: 2 TABLET
     Route: 048
     Dates: start: 20181001
  10. PLAMET [Concomitant]
     Active Substance: BROMOPRIDE
     Indication: GASTROOESOPHAGEAL REFLUX PROPHYLAXIS
  11. DEPAKENE [Suspect]
     Active Substance: VALPROIC ACID
     Indication: SYNCOPE
     Route: 050
     Dates: start: 20181001
  12. LEVOTHYROXINE SODIUM. [Concomitant]
     Active Substance: LEVOTHYROXINE SODIUM
     Indication: THYROID DISORDER
     Dosage: PURAN 125 MCG (LEVOTHYROXINE SODIUM); DAILY DOSE: 1 TABLET
     Route: 050
  13. NEXIUM [Concomitant]
     Active Substance: ESOMEPRAZOLE MAGNESIUM
     Indication: GASTROOESOPHAGEAL REFLUX PROPHYLAXIS
  14. NEXIUM [Concomitant]
     Active Substance: ESOMEPRAZOLE MAGNESIUM
     Indication: NAUSEA
  15. MIRTAZAPINE. [Concomitant]
     Active Substance: MIRTAZAPINE
     Indication: DEPRESSION
     Dosage: ADMINISTERED AT 10:30AM;; DAILY DOSE: 1 TABLET
     Route: 050
     Dates: start: 20181001
  16. MOTILIUM [Concomitant]
     Active Substance: DOMPERIDONE
     Indication: GASTROINTESTINAL DISORDER PROPHYLAXIS
     Route: 050
     Dates: start: 20140101
  17. MOTILIUM [Concomitant]
     Active Substance: DOMPERIDONE
     Indication: GASTROOESOPHAGEAL REFLUX PROPHYLAXIS
  18. ACTIVE [Concomitant]
     Indication: GLAUCOMA
     Dosage: BEFORE SLEEP; DOSE IS 1 DROP PER EYE
     Route: 047

REACTIONS (8)
  - Product use in unapproved indication [Unknown]
  - Gamma-glutamyltransferase increased [Not Recovered/Not Resolved]
  - Incorrect route of product administration [Not Recovered/Not Resolved]
  - Off label use [Unknown]
  - Wrong technique in product usage process [Unknown]
  - Brain neoplasm benign [Unknown]
  - Aspiration [Not Recovered/Not Resolved]
  - Investigation abnormal [Unknown]

NARRATIVE: CASE EVENT DATE: 201809
